FAERS Safety Report 10086986 (Version 2)
Quarter: 2014Q2

REPORT INFORMATION
  Report Type: Report from Study
  Country: BD (occurrence: BD)
  Receive Date: 20140418
  Receipt Date: 20140418
  Transmission Date: 20141212
  Serious: Yes (Death, Other)
  Sender: FDA-Public Use
  Company Number: PHHY2014BD035507

PATIENT
  Age: 79 Year
  Sex: Male

DRUGS (3)
  1. ACLASTA [Suspect]
     Indication: OSTEOPOROSIS
     Dosage: ONCE YEARLY
     Route: 042
     Dates: start: 20130701
  2. ANTIHYPERTENSIVES [Concomitant]
     Indication: HYPERTENSION
     Dosage: UNK UKN, UNK
  3. ECOSPRIN [Concomitant]
     Indication: CARDIAC DISORDER
     Dosage: UNK UKN, UNK

REACTIONS (2)
  - Cerebrovascular accident [Fatal]
  - Lung infection [Unknown]
